FAERS Safety Report 12319495 (Version 3)
Quarter: 2017Q1

REPORT INFORMATION
  Report Type: Spontaneous
  Country: IL (occurrence: IL)
  Receive Date: 20160429
  Receipt Date: 20170113
  Transmission Date: 20170428
  Serious: Yes (Hospitalization, Other)
  Sender: FDA-Public Use
  Company Number: IL-SA-2016SA084282

PATIENT
  Age: 55 Year
  Sex: Female

DRUGS (7)
  1. CAPRELSA [Suspect]
     Active Substance: VANDETANIB
     Indication: MEDULLARY THYROID CANCER
     Route: 065
  2. CAPRELSA [Suspect]
     Active Substance: VANDETANIB
     Indication: CUSHING^S SYNDROME
     Route: 048
  3. CAPRELSA [Suspect]
     Active Substance: VANDETANIB
     Indication: MEDULLARY THYROID CANCER
     Route: 048
  4. CAPRELSA [Suspect]
     Active Substance: VANDETANIB
     Indication: MEDULLARY THYROID CANCER
     Route: 048
  5. CAPRELSA [Suspect]
     Active Substance: VANDETANIB
     Indication: CUSHING^S SYNDROME
     Route: 048
  6. LANREOTIDE [Suspect]
     Active Substance: LANREOTIDE
     Indication: MEDULLARY THYROID CANCER
     Route: 065
  7. CAPRELSA [Suspect]
     Active Substance: VANDETANIB
     Indication: CUSHING^S SYNDROME
     Route: 065

REACTIONS (3)
  - Electrocardiogram QT prolonged [Recovered/Resolved]
  - Intestinal perforation [Unknown]
  - Colitis [Unknown]
